FAERS Safety Report 7328434-6 (Version None)
Quarter: 2011Q1

REPORT INFORMATION
  Report Type: 
  Country: None (occurrence: None)
  Receive Date: 20110223
  Receipt Date: 20110210
  Transmission Date: 20110831
  Serious: Yes (Hospitalization)
  Sender: FDA-Public Use
  Company Number: UTC-005198

PATIENT
  Age: 65 Year
  Sex: Female
  Weight: 70 kg

DRUGS (4)
  1. DIURETICS (DIURETICS) [Concomitant]
  2. REVATIO [Concomitant]
  3. REMODULIN [Suspect]
     Dosage: 144 UG/KG (0.1 UG/KG, 1 IN 1 MIN), INTRAVENOUS
     Route: 042
     Dates: start: 20101025
  4. COUMADIN [Concomitant]

REACTIONS (2)
  - RIGHT VENTRICULAR FAILURE [None]
  - ASCITES [None]
